FAERS Safety Report 6194233-4 (Version None)
Quarter: 2009Q2

REPORT INFORMATION
  Report Type: 
  Country: None (occurrence: None)
  Receive Date: 20090511
  Receipt Date: 20090427
  Transmission Date: 20091009
  Serious: Yes (Death)
  Sender: FDA-Public Use
  Company Number: THYM-1000956

PATIENT
  Age: 7 Year
  Sex: Female

DRUGS (3)
  1. THYMOGLOBULIN [Suspect]
     Indication: RENAL TRANSPLANT
     Dosage: 15 MG/KG, UNK, INTRAVENOUS
     Route: 042
     Dates: start: 20090308, end: 20090310
  2. MYCOPHENOLATE MOFETIL [Concomitant]
  3. PREDNISONE TAB [Concomitant]

REACTIONS (1)
  - PNEUMONIA BACTERIAL [None]
